FAERS Safety Report 19273922 (Version 2)
Quarter: 2021Q3

REPORT INFORMATION
  Report Type: Report from Study
  Country: US (occurrence: US)
  Receive Date: 20210519
  Receipt Date: 20210726
  Transmission Date: 20211014
  Serious: Yes (Hospitalization)
  Sender: FDA-Public Use
  Company Number: US-BIOGEN-2021BI01011212

PATIENT
  Age: 60 Year
  Sex: Male

DRUGS (2)
  1. TYSABRI [Suspect]
     Active Substance: NATALIZUMAB
     Indication: MULTIPLE SCLEROSIS
     Route: 042
     Dates: start: 20201111
  2. IGD [Concomitant]
     Indication: PRODUCT USED FOR UNKNOWN INDICATION
     Dosage: IGD EVERY FOURTEEN DAYS
     Route: 065

REACTIONS (5)
  - Multiple sclerosis [Not Recovered/Not Resolved]
  - Gait inability [Unknown]
  - Dysstasia [Unknown]
  - Mobility decreased [Unknown]
  - Urinary retention [Unknown]

NARRATIVE: CASE EVENT DATE: 20210303
